FAERS Safety Report 16769327 (Version 1)
Quarter: 2019Q3

REPORT INFORMATION
  Report Type: Spontaneous
  Country: US (occurrence: US)
  Receive Date: 20190903
  Receipt Date: 20190903
  Transmission Date: 20191005
  Serious: No
  Sender: FDA-Public Use
  Company Number: US-TEVA-2019-US-1102462

PATIENT
  Sex: Male

DRUGS (1)
  1. ESOMEPRAZOLE MAGNESIUM DELAYED-RELEASE CAPSULE [Suspect]
     Active Substance: ESOMEPRAZOLE MAGNESIUM
     Indication: IMPAIRED GASTRIC EMPTYING
     Dosage: DELAYED-RELEASE CAPSULES
     Route: 065

REACTIONS (4)
  - Nausea [Recovering/Resolving]
  - Drug ineffective [Unknown]
  - Product substitution issue [Unknown]
  - Abdominal pain upper [Recovering/Resolving]
